FAERS Safety Report 9319869 (Version 1)
Quarter: 2013Q2

REPORT INFORMATION
  Report Type: Spontaneous
  Country: US (occurrence: US)
  Receive Date: 20130530
  Receipt Date: 20130530
  Transmission Date: 20140414
  Serious: Yes (Other)
  Sender: FDA-Public Use
  Company Number: US-JNJFOC-20130513378

PATIENT
  Age: 13 Year
  Sex: Male

DRUGS (2)
  1. DOXORUBICIN [Suspect]
     Indication: SYNOVIAL SARCOMA
     Route: 042
     Dates: end: 201001
  2. IFOSFAMIDE [Suspect]
     Indication: SYNOVIAL SARCOMA
     Route: 065
     Dates: end: 201001

REACTIONS (3)
  - Surgery [Recovering/Resolving]
  - Adverse event [Unknown]
  - Off label use [Unknown]
